FAERS Safety Report 13190257 (Version 3)
Quarter: 2018Q3

REPORT INFORMATION
  Report Type: Report from Study
  Country: US (occurrence: US)
  Receive Date: 20170206
  Receipt Date: 20180706
  Transmission Date: 20181010
  Serious: Yes (Other)
  Sender: FDA-Public Use
  Company Number: US-PFIZER INC-2016255147

PATIENT
  Age: 83 Year
  Sex: Female

DRUGS (6)
  1. ZITHROMAX [Suspect]
     Active Substance: AZITHROMYCIN DIHYDRATE
     Indication: NASOPHARYNGITIS
     Dosage: UNK
  2. ENBREL [Suspect]
     Active Substance: ETANERCEPT
     Indication: FIBROMYALGIA
     Dosage: 50 MG, QWK
     Route: 058
  3. ISTALOL [Concomitant]
     Active Substance: TIMOLOL MALEATE
     Dosage: UNK
  4. ENBREL [Suspect]
     Active Substance: ETANERCEPT
     Dosage: 50 MG, QWK
     Route: 065
  5. ENBREL [Suspect]
     Active Substance: ETANERCEPT
     Indication: RHEUMATOID ARTHRITIS
     Dosage: 50 MG, WEEKLY
     Route: 058
     Dates: start: 2012
  6. ARMOUR THYROID [Concomitant]
     Active Substance: THYROID, PORCINE
     Dosage: UNK

REACTIONS (18)
  - Diarrhoea [Recovered/Resolved]
  - Arthralgia [Unknown]
  - Somnolence [Unknown]
  - Pain [Unknown]
  - Psoriasis [Unknown]
  - Product quality issue [Unknown]
  - Nasopharyngitis [Recovered/Resolved]
  - Vertigo [Unknown]
  - Osteoporosis [Unknown]
  - Blindness [Unknown]
  - Rash [Unknown]
  - Joint swelling [Unknown]
  - Peripheral swelling [Unknown]
  - Glaucoma [Unknown]
  - Injection site pain [Unknown]
  - Drug dose omission [Unknown]
  - Neuropathy peripheral [Unknown]
  - Depression [Unknown]

NARRATIVE: CASE EVENT DATE: 201605
